FAERS Safety Report 7023605-0 (Version None)
Quarter: 2010Q3

REPORT INFORMATION
  Report Type: 
  Country: None (occurrence: None)
  Receive Date: 20100930
  Receipt Date: 20100930
  Transmission Date: 20110219
  Serious: Yes (Hospitalization)
  Sender: FDA-Public Use
  Company Number: None

PATIENT
  Sex: Female
  Weight: 69.4003 kg

DRUGS (2)
  1. FERAHEME [Suspect]
     Indication: DRUG RESISTANCE
     Dosage: 510 MG ONCE/WK X 2 DOSES IV BOLUS
     Route: 040
     Dates: start: 20100714, end: 20100723
  2. FERAHEME [Suspect]
     Indication: IRON DEFICIENCY ANAEMIA
     Dosage: 510 MG ONCE/WK X 2 DOSES IV BOLUS
     Route: 040
     Dates: start: 20100714, end: 20100723

REACTIONS (4)
  - DERMATITIS EXFOLIATIVE [None]
  - NO THERAPEUTIC RESPONSE [None]
  - PRURITUS [None]
  - STEVENS-JOHNSON SYNDROME [None]
